FAERS Safety Report 13681706 (Version 1)
Quarter: 2017Q2

REPORT INFORMATION
  Report Type: Spontaneous
  Country: US (occurrence: US)
  Receive Date: 20170622
  Receipt Date: 20170622
  Transmission Date: 20170830
  Serious: Yes (Hospitalization, Disabling)
  Sender: FDA-Public Use
  Company Number: None

PATIENT
  Age: 32 Year
  Sex: Female
  Weight: 50.4 kg

DRUGS (1)
  1. CIPROFLOAXICIN [Suspect]
     Active Substance: CIPROFLOXACIN
     Indication: URINARY TRACT INFECTION
     Dates: start: 20170113, end: 20170119

REACTIONS (8)
  - Depression [None]
  - Confusional state [None]
  - Neuralgia [None]
  - Exposure during pregnancy [None]
  - Myalgia [None]
  - Tendon pain [None]
  - Anxiety [None]
  - Pain in extremity [None]

NARRATIVE: CASE EVENT DATE: 20170113
